FAERS Safety Report 8931449 (Version 1)
Quarter: 2012Q4

REPORT INFORMATION
  Report Type: 
  Country: CA (occurrence: CA)
  Receive Date: 20121128
  Receipt Date: 20121128
  Transmission Date: 20130627
  Serious: Yes (Other)
  Sender: FDA-Public Use
  Company Number: CA-B.I. PHARMACEUTICALS,INC./RIDGEFIELD-2012-CN-02335CN

PATIENT
  Age: 58 Year
  Sex: Female
  Weight: 89 kg

DRUGS (4)
  1. PRADAX [Suspect]
     Dosage: 300 mg
     Route: 048
  2. ATACAND [Concomitant]
     Route: 065
  3. LEVOTHYROXINE [Concomitant]
     Route: 065
  4. METOPROLOL [Concomitant]
     Route: 065

REACTIONS (5)
  - Alanine aminotransferase increased [Recovered/Resolved]
  - Aspartate aminotransferase increased [Recovered/Resolved]
  - Gamma-glutamyltransferase increased [Recovered/Resolved]
  - Rash erythematous [Recovered/Resolved]
  - Rash pruritic [Recovered/Resolved]
